FAERS Safety Report 6395786-3 (Version None)
Quarter: 2009Q4

REPORT INFORMATION
  Report Type: 
  Country: None (occurrence: None)
  Receive Date: 20091009
  Receipt Date: 20090930
  Transmission Date: 20100525
  Serious: Yes (Hospitalization, Other)
  Sender: FDA-Public Use
  Company Number: CA-ABBOTT-09P-028-0599295-00

PATIENT
  Sex: Female
  Weight: 113.5 kg

DRUGS (6)
  1. HUMIRA [Suspect]
     Indication: CROHN'S DISEASE
     Route: 058
     Dates: start: 20090828
  2. PREDNISONE [Concomitant]
     Indication: DRUG USE FOR UNKNOWN INDICATION
  3. TOPERIMATE [Concomitant]
     Indication: DRUG USE FOR UNKNOWN INDICATION
  4. IMITREX [Concomitant]
     Indication: DRUG USE FOR UNKNOWN INDICATION
  5. PANTOPRAZOLE [Concomitant]
     Indication: DRUG USE FOR UNKNOWN INDICATION
  6. TACROLIMUS [Concomitant]
     Indication: ULCER

REACTIONS (6)
  - CELLULITIS [None]
  - CHILLS [None]
  - FATIGUE [None]
  - INTESTINAL FISTULA [None]
  - PYREXIA [None]
  - VEIN DISORDER [None]
